FAERS Safety Report 4422444-4 (Version None)
Quarter: 2004Q3

REPORT INFORMATION
  Report Type: 
  Country: None (occurrence: None)
  Receive Date: 20040806
  Receipt Date: 20040715
  Transmission Date: 20050211
  Serious: Yes (Other)
  Sender: FDA-Public Use
  Company Number: DSA_80709_2004

PATIENT
  Age: 48 Year
  Sex: Female
  Weight: 61.2356 kg

DRUGS (6)
  1. XYREM [Suspect]
     Indication: INSOMNIA
     Dosage: 4.5 G NIGHTLY PO
     Route: 048
  2. XYREM [Suspect]
     Indication: PAIN
     Dosage: 4.5 G NIGHTLY PO
     Route: 048
  3. PREMARIN [Concomitant]
  4. VIOXX [Concomitant]
  5. HYDROCHLOROTHIAZIDE [Concomitant]
  6. VITAMINS NOS [Concomitant]

REACTIONS (2)
  - FEELING ABNORMAL [None]
  - THERAPEUTIC PRODUCT INEFFECTIVE [None]
